FAERS Safety Report 26019371 (Version 1)
Quarter: 2025Q4

REPORT INFORMATION
  Report Type: Spontaneous
  Country: GB (occurrence: GB)
  Receive Date: 20251110
  Receipt Date: 20251110
  Transmission Date: 20260118
  Serious: Yes (Hospitalization, Other)
  Sender: EXELA PHARMA SCIENCES
  Company Number: GB-EXELAPHARMA-2025EXLA00212

PATIENT
  Age: 39 Year
  Sex: Female

DRUGS (3)
  1. TRANEXAMIC ACID [Suspect]
     Active Substance: TRANEXAMIC ACID
     Indication: Heavy menstrual bleeding
     Dosage: INITIAL FOUR-DAY COURSE
  2. TRANEXAMIC ACID [Suspect]
     Active Substance: TRANEXAMIC ACID
     Indication: Uterine leiomyoma
     Dosage: SECOND COURSE THREE-DAY COURSE.
  3. NORETHINDRONE [Suspect]
     Active Substance: NORETHINDRONE
     Indication: Heavy menstrual bleeding

REACTIONS (8)
  - Venous haemorrhage [Unknown]
  - Iron deficiency anaemia [Unknown]
  - Venous hypertension [Unknown]
  - Vasogenic cerebral oedema [Unknown]
  - Cerebral venous sinus thrombosis [Unknown]
  - Generalised tonic-clonic seizure [Recovered/Resolved]
  - Drug ineffective for unapproved indication [Unknown]
  - Blood lactic acid increased [Unknown]
